FAERS Safety Report 16443796 (Version 1)
Quarter: 2019Q2

REPORT INFORMATION
  Report Type: Spontaneous
  Country: ES (occurrence: ES)
  Receive Date: 20190618
  Receipt Date: 20190618
  Transmission Date: 20190711
  Serious: Yes (Death, Other)
  Sender: FDA-Public Use
  Company Number: ES-ABBVIE-19K-144-2823031-00

PATIENT
  Age: 55 Year
  Sex: Male

DRUGS (1)
  1. HUMIRA [Suspect]
     Active Substance: ADALIMUMAB
     Indication: HIDRADENITIS
     Route: 058
     Dates: start: 2017

REACTIONS (16)
  - Spinal disorder [Unknown]
  - Computerised tomogram abnormal [Unknown]
  - Osteomyelitis [Unknown]
  - Rectal discharge [Unknown]
  - Death [Fatal]
  - Squamous cell carcinoma [Unknown]
  - Faecaloma [Unknown]
  - Mass [Unknown]
  - Fistula [Unknown]
  - Necrosis [Unknown]
  - Ascites [Unknown]
  - Hepatic lesion [Unknown]
  - Metastasis [Unknown]
  - Laboratory test abnormal [Unknown]
  - Flatulence [Unknown]
  - Lymphadenopathy [Unknown]
